FAERS Safety Report 10103184 (Version 1)
Quarter: 2014Q2

REPORT INFORMATION
  Report Type: Spontaneous
  Country: US (occurrence: US)
  Receive Date: 20140424
  Receipt Date: 20140424
  Transmission Date: 20141212
  Serious: No
  Sender: FDA-Public Use
  Company Number: US-BRISTOL-MYERS SQUIBB COMPANY-20159042

PATIENT
  Age: 71 Year
  Sex: Male
  Weight: 97.05 kg

DRUGS (1)
  1. ELIQUIS [Suspect]
     Indication: CARDIAC PACEMAKER INSERTION

REACTIONS (1)
  - Adverse event [Unknown]
